FAERS Safety Report 8048546-1 (Version None)
Quarter: 2012Q1

REPORT INFORMATION
  Report Type: 
  Country: None (occurrence: None)
  Receive Date: 20120117
  Receipt Date: 20120110
  Transmission Date: 20120608
  Serious: Yes (Hospitalization, Other)
  Sender: FDA-Public Use
  Company Number: US-UCBSA-048044

PATIENT
  Age: 66 Year
  Sex: Male

DRUGS (7)
  1. ASPIRIN [Concomitant]
  2. LANTUS [Concomitant]
     Dosage: BED TIME
  3. ZOLOFT [Concomitant]
     Dosage: DAILY DOSE: 25 MG
  4. VALPROIC ACID [Concomitant]
     Indication: CONVULSION
     Dates: start: 20110101
  5. PLAVIX [Concomitant]
     Dosage: DAILY DOSE: 75 MG
  6. VIMPAT [Suspect]
     Indication: CONVULSION
     Dates: start: 20110101
  7. COREG [Concomitant]
     Indication: HYPERTENSION
     Dosage: 12.5 MG

REACTIONS (4)
  - DYSPNOEA [None]
  - POOR PERIPHERAL CIRCULATION [None]
  - MYOCARDIAL INFARCTION [None]
  - CONVULSION [None]
